FAERS Safety Report 7558704-8 (Version None)
Quarter: 2011Q2

REPORT INFORMATION
  Report Type: 
  Country: None (occurrence: None)
  Receive Date: 20110621
  Receipt Date: 20110613
  Transmission Date: 20111010
  Serious: No
  Sender: FDA-Public Use
  Company Number: US-BIOGENIDEC-2011BI021828

PATIENT
  Sex: Female

DRUGS (1)
  1. TYSABRI [Suspect]
     Indication: MULTIPLE SCLEROSIS
     Route: 042
     Dates: start: 20110317

REACTIONS (9)
  - GAIT DISTURBANCE [None]
  - LOSS OF CONSCIOUSNESS [None]
  - HYPERHIDROSIS [None]
  - SYNCOPE [None]
  - NAUSEA [None]
  - VOMITING [None]
  - FATIGUE [None]
  - FALL [None]
  - DIZZINESS [None]
